FAERS Safety Report 9890489 (Version 1)
Quarter: 2014Q1

REPORT INFORMATION
  Report Type: Spontaneous
  Country: CO (occurrence: CO)
  Receive Date: 20140212
  Receipt Date: 20140212
  Transmission Date: 20141002
  Serious: Yes (Hospitalization)
  Sender: FDA-Public Use
  Company Number: CO-ACCORD-021785

PATIENT
  Age: 33 Year
  Sex: Male

DRUGS (4)
  1. TACROLIMUS [Suspect]
     Indication: IMMUNOSUPPRESSION
  2. MYCOPHENOLIC ACID [Suspect]
     Indication: IMMUNOSUPPRESSION
  3. PREDNISONE [Suspect]
     Indication: IMMUNOSUPPRESSION
  4. METHYLPREDNISOLONE [Suspect]
     Indication: IMMUNOSUPPRESSION

REACTIONS (1)
  - Zygomycosis [Recovered/Resolved]
